FAERS Safety Report 8013372-6 (Version None)
Quarter: 2011Q4

REPORT INFORMATION
  Report Type: 
  Country: None (occurrence: None)
  Receive Date: 20111229
  Receipt Date: 20111222
  Transmission Date: 20120403
  Serious: Yes (Hospitalization)
  Sender: FDA-Public Use
  Company Number: US-JNJFOC-20111209995

PATIENT
  Sex: Female

DRUGS (1)
  1. REMICADE [Suspect]
     Indication: RHEUMATOID ARTHRITIS
     Route: 042
     Dates: end: 20110101

REACTIONS (5)
  - TRANSFUSION [None]
  - JOINT DISLOCATION [None]
  - HIP SURGERY [None]
  - NEPHROLITHIASIS [None]
  - SEPSIS [None]
